FAERS Safety Report 6310817-4 (Version None)
Quarter: 2009Q3

REPORT INFORMATION
  Report Type: 
  Country: None (occurrence: None)
  Receive Date: 20090812
  Receipt Date: 20090728
  Transmission Date: 20100115
  Serious: Yes (Other)
  Sender: FDA-Public Use
  Company Number: US-1170404

PATIENT
  Age: 31 Year
  Sex: Female

DRUGS (1)
  1. BSS [Suspect]
     Dosage: (5 ML INTRAOCULAR)
     Route: 031

REACTIONS (5)
  - ENDOPHTHALMITIS [None]
  - HYPOPYON [None]
  - RETINAL TEAR [None]
  - VITREOUS DETACHMENT [None]
  - VITREOUS HAEMORRHAGE [None]
